FAERS Safety Report 9962948 (Version 2)
Quarter: 2014Q1

REPORT INFORMATION
  Report Type: Spontaneous
  Country: JP (occurrence: JP)
  Receive Date: 20140305
  Receipt Date: 20140305
  Transmission Date: 20141002
  Serious: Yes (Hospitalization)
  Sender: FDA-Public Use
  Company Number: JP-PFIZER INC-2014051172

PATIENT
  Age: 87 Year
  Sex: Female

DRUGS (6)
  1. SELARA [Suspect]
     Indication: HYPERTENSION
     Dosage: 25 MG, DAILY
     Route: 048
  2. GASTER D [Concomitant]
     Dosage: 10 MG, DAILY
     Route: 048
  3. LIPITOR [Concomitant]
     Dosage: 5 MG, DAILY
     Route: 048
  4. BAYASPIRIN [Concomitant]
     Dosage: 100 MG, DAILY
     Route: 048
  5. MAG-LAX [Concomitant]
     Route: 048
  6. LAXOBERON [Concomitant]
     Route: 048

REACTIONS (3)
  - Thrombotic cerebral infarction [Unknown]
  - Protein urine present [Unknown]
  - Creatinine renal clearance decreased [Unknown]
